FAERS Safety Report 25148733 (Version 1)
Quarter: 2025Q2

REPORT INFORMATION
  Report Type: Spontaneous
  Country: TW (occurrence: TW)
  Receive Date: 20250402
  Receipt Date: 20250402
  Transmission Date: 20250716
  Serious: Yes (Death)
  Sender: ROCHE
  Company Number: TW-ROCHE-10000245552

PATIENT
  Age: 43 Year
  Sex: Female

DRUGS (2)
  1. AVASTIN [Suspect]
     Active Substance: BEVACIZUMAB
     Indication: Endometrial adenocarcinoma
     Route: 065
     Dates: start: 20190610
  2. PACLITAXEL [Suspect]
     Active Substance: PACLITAXEL
     Indication: Endometrial adenocarcinoma
     Route: 065

REACTIONS (1)
  - Gliosis [Fatal]

NARRATIVE: CASE EVENT DATE: 20211215
